FAERS Safety Report 5551258-7 (Version None)
Quarter: 2007Q4

REPORT INFORMATION
  Report Type: 
  Country: None (occurrence: None)
  Receive Date: 20071128
  Receipt Date: 20061113
  Transmission Date: 20080405
  Serious: Yes (Other)
  Sender: FDA-Public Use
  Company Number: 2006001315

PATIENT
  Age: 59 Year
  Sex: Male
  Weight: 68.0396 kg

DRUGS (1)
  1. LIPITOR [Suspect]
     Indication: BLOOD CHOLESTEROL INCREASED
     Dosage: 10 MG (10 MG,QD EVERYDAY); 1.2 YEARS AGO

REACTIONS (8)
  - AMNESIA [None]
  - ARTHRALGIA [None]
  - BLOOD POTASSIUM INCREASED [None]
  - CONSTIPATION [None]
  - FLATULENCE [None]
  - LIPOPROTEIN (A) INCREASED [None]
  - MYALGIA [None]
  - PAIN IN EXTREMITY [None]
